FAERS Safety Report 16004093 (Version 3)
Quarter: 2019Q1

REPORT INFORMATION
  Report Type: Spontaneous
  Country: IT (occurrence: IT)
  Receive Date: 20190225
  Receipt Date: 20190301
  Transmission Date: 20190418
  Serious: Yes (Other)
  Sender: FDA-Public Use
  Company Number: IT-ACCORD-109369

PATIENT
  Age: 79 Year
  Sex: Female

DRUGS (8)
  1. LANSOPRAZOLE. [Concomitant]
     Active Substance: LANSOPRAZOLE
  2. COUMADIN [Concomitant]
     Active Substance: WARFARIN SODIUM
  3. SINVACOR [Concomitant]
     Active Substance: SIMVASTATIN
  4. SELOKEN [Concomitant]
     Active Substance: METOPROLOL
  5. TRAJENTA [Concomitant]
     Active Substance: LINAGLIPTIN
  6. FUROSEMIDE. [Suspect]
     Active Substance: FUROSEMIDE
     Indication: CARDIAC FAILURE
     Route: 048
  7. ENAPREN [Concomitant]
     Active Substance: ENALAPRIL MALEATE
  8. DIBASE [Concomitant]
     Active Substance: CHOLECALCIFEROL

REACTIONS (3)
  - Asthenia [Recovering/Resolving]
  - Dyspepsia [Recovering/Resolving]
  - Hyponatraemia [Recovering/Resolving]

NARRATIVE: CASE EVENT DATE: 20180724
